FAERS Safety Report 26016555 (Version 1)
Quarter: 2025Q4

REPORT INFORMATION
  Report Type: Spontaneous
  Country: MX (occurrence: MX)
  Receive Date: 20251110
  Receipt Date: 20251110
  Transmission Date: 20260117
  Serious: Yes (Death)
  Sender: ROCHE
  Company Number: MX-ROCHE-10000431350

PATIENT
  Age: 77 Year
  Sex: Female
  Weight: 45 kg

DRUGS (3)
  1. PERTUZUMAB [Suspect]
     Active Substance: PERTUZUMAB
     Indication: Breast cancer stage II
     Dosage: FREQUENCY: 21 (UNIT NOT REPORTED)
     Route: 042
     Dates: start: 20250627, end: 20251030
  2. ANASTROZOLE [Concomitant]
     Active Substance: ANASTROZOLE
     Dosage: FREQUENCY: 24 (UNIT NO REPORTED)
     Route: 065
  3. TRASTUZUMAB (NON-ROCHE) [Concomitant]
     Route: 065

REACTIONS (1)
  - Death [Fatal]
